FAERS Safety Report 19156077 (Version 1)
Quarter: 2021Q2

REPORT INFORMATION
  Report Type: Report from Study
  Country: US (occurrence: US)
  Receive Date: 20210419
  Receipt Date: 20210419
  Transmission Date: 20210717
  Serious: Yes (Death, Hospitalization, Other)
  Sender: FDA-Public Use
  Company Number: US-PFIZER INC-2018174175

PATIENT
  Age: 85 Year
  Sex: Female

DRUGS (7)
  1. IBRANCE [Suspect]
     Active Substance: PALBOCICLIB
     Dosage: 100 MG, CYCLIC (DAILY, 21 DAY ON/7 DAY OFF)
     Route: 048
     Dates: start: 20180525
  2. IBRANCE [Suspect]
     Active Substance: PALBOCICLIB
     Dosage: 75 MG, CYCLIC (DAILY, 1 WEEK ON, 1 WEEK OFF)
     Route: 048
     Dates: start: 20200817, end: 202011
  3. IBRANCE [Suspect]
     Active Substance: PALBOCICLIB
     Indication: BREAST CANCER FEMALE
     Dosage: 100 MG, CYCLIC (DAILY, 21 DAYS ON AND 14 DAYS OFF)
     Route: 048
     Dates: start: 20180422, end: 2018
  4. LETROZOLE. [Concomitant]
     Active Substance: LETROZOLE
     Dosage: UNK
  5. FASLODEX [Suspect]
     Active Substance: FULVESTRANT
     Dosage: UNK
     Dates: start: 202104
  6. IBRANCE [Suspect]
     Active Substance: PALBOCICLIB
     Dosage: 75 MG, CYCLIC (21 DAYS ON, 7 DAYS OFF)
     Route: 048
     Dates: start: 20200628
  7. IBRANCE [Suspect]
     Active Substance: PALBOCICLIB
     Dosage: 75 MG, CYCLIC (DAILY, ONE WEEK ON/ONE WEEK OFF)
     Route: 048
     Dates: start: 20210221, end: 20210403

REACTIONS (46)
  - Lung disorder [Unknown]
  - Pulmonary congestion [Recovered/Resolved]
  - Asthenia [Not Recovered/Not Resolved]
  - Dysphagia [Unknown]
  - Respiratory tract congestion [Not Recovered/Not Resolved]
  - Hiatus hernia [Unknown]
  - Bone pain [Unknown]
  - Sepsis [Fatal]
  - Condition aggravated [Recovering/Resolving]
  - Diarrhoea [Not Recovered/Not Resolved]
  - Decreased appetite [Recovering/Resolving]
  - Condition aggravated [Not Recovered/Not Resolved]
  - Cough [Not Recovered/Not Resolved]
  - Weight decreased [Not Recovered/Not Resolved]
  - Alopecia [Not Recovered/Not Resolved]
  - Tremor [Unknown]
  - Pain in extremity [Not Recovered/Not Resolved]
  - Contusion [Not Recovered/Not Resolved]
  - Cardiac disorder [Unknown]
  - Pain [Unknown]
  - Constipation [Unknown]
  - Red blood cell count increased [Unknown]
  - Chromaturia [Unknown]
  - Confusional state [Unknown]
  - Skin discolouration [Recovered/Resolved]
  - Memory impairment [Unknown]
  - Tooth fracture [Unknown]
  - Product use issue [Unknown]
  - Neoplasm progression [Recovering/Resolving]
  - Headache [Unknown]
  - Arthritis [Unknown]
  - Multiple sclerosis [Recovering/Resolving]
  - Fatigue [Not Recovered/Not Resolved]
  - Dyspnoea [Not Recovered/Not Resolved]
  - Wheezing [Not Recovered/Not Resolved]
  - Trigger finger [Not Recovered/Not Resolved]
  - Speech disorder [Unknown]
  - Crepitations [Not Recovered/Not Resolved]
  - Off label use [Unknown]
  - Intentional product misuse [Unknown]
  - Respiratory syncytial virus infection [Unknown]
  - Arthralgia [Not Recovered/Not Resolved]
  - Hypomagnesaemia [Recovered/Resolved]
  - Muscle atrophy [Unknown]
  - Tumour marker increased [Unknown]
  - Neoplasm progression [Unknown]

NARRATIVE: CASE EVENT DATE: 2018
